FAERS Safety Report 6963409-8 (Version None)
Quarter: 2010Q3

REPORT INFORMATION
  Report Type: 
  Country: None (occurrence: None)
  Receive Date: 20100902
  Receipt Date: 20100901
  Transmission Date: 20110219
  Serious: Yes (Other)
  Sender: FDA-Public Use
  Company Number: A0878958A

PATIENT
  Age: 58 Year
  Sex: Male

DRUGS (3)
  1. WELLBUTRIN XL [Suspect]
     Indication: PRODUCT USED FOR UNKNOWN INDICATION
     Dosage: 150MG PER DAY
     Route: 048
  2. VITAMIN B-12 [Concomitant]
     Route: 048
  3. VITAMIN D [Concomitant]
     Route: 048

REACTIONS (4)
  - CONDITION AGGRAVATED [None]
  - NEGATIVE THOUGHTS [None]
  - OBSESSIVE THOUGHTS [None]
  - SUICIDAL IDEATION [None]
